FAERS Safety Report 8552758-8 (Version None)
Quarter: 2012Q3

REPORT INFORMATION
  Report Type: 
  Country: None (occurrence: None)
  Receive Date: 20120731
  Receipt Date: 20120725
  Transmission Date: 20120928
  Serious: Yes (Other)
  Sender: FDA-Public Use
  Company Number: PHHY2012JP057868

PATIENT
  Age: 83 Year
  Sex: Female

DRUGS (7)
  1. RIVASTIGMINE [Suspect]
     Dosage: 18 MG, QD
     Route: 062
     Dates: start: 20120425, end: 20120509
  2. ELNEOPA NO.2 [Suspect]
     Dosage: 1000 ML, DAILY
     Route: 042
     Dates: start: 20120128
  3. RIVASTIGMINE [Suspect]
     Dosage: 9 MG, QD
     Route: 062
     Dates: start: 20120229, end: 20120327
  4. RIVASTIGMINE [Suspect]
     Indication: DEMENTIA ALZHEIMER'S TYPE
     Dosage: 4.5 MG, QD
     Route: 062
     Dates: start: 20120201, end: 20120228
  5. LAXOBERON [Concomitant]
     Dates: start: 20120313
  6. LEVOFLOXACIN [Concomitant]
     Dates: start: 20120414, end: 20120417
  7. RIVASTIGMINE [Suspect]
     Dosage: 13.5 MG, QD
     Route: 062
     Dates: start: 20120328, end: 20120424

REACTIONS (1)
  - HEPATIC FUNCTION ABNORMAL [None]
